FAERS Safety Report 9238260 (Version 1)
Quarter: 2013Q2

REPORT INFORMATION
  Report Type: Spontaneous
  Country: TR (occurrence: None)
  Receive Date: 20130416
  Receipt Date: 20130416
  Transmission Date: 20140414
  Serious: Yes (Hospitalization)
  Sender: FDA-Public Use
  Company Number: 147478

PATIENT
  Age: 48 Year
  Sex: Male

DRUGS (2)
  1. LEUCOVORIN CALCIUM FOR INJ. 50MG - BEDFORD LABS, INC. [Suspect]
     Indication: GASTRIC CANCER
  2. REFER TO ATTACHED LITEARATURE ARTICLE [Concomitant]

REACTIONS (5)
  - Stress cardiomyopathy [None]
  - Peritonitis [None]
  - Tachycardia [None]
  - Breath sounds abnormal [None]
  - Left ventricular dysfunction [None]
